FAERS Safety Report 13462243 (Version 1)
Quarter: 2017Q2

REPORT INFORMATION
  Report Type: Spontaneous
  Country: US (occurrence: US)
  Receive Date: 20170419
  Receipt Date: 20170419
  Transmission Date: 20170830
  Serious: Yes (Death)
  Sender: FDA-Public Use
  Company Number: None

PATIENT
  Age: 65 Year
  Sex: Male

DRUGS (6)
  1. KEYTRUDA [Suspect]
     Active Substance: PEMBROLIZUMAB
     Indication: HEART DISEASE CONGENITAL
  2. XALKORI [Suspect]
     Active Substance: CRIZOTINIB
     Indication: HEART DISEASE CONGENITAL
  3. XGEVA [Suspect]
     Active Substance: DENOSUMAB
     Indication: HEART DISEASE CONGENITAL
  4. KEYTRUDA [Suspect]
     Active Substance: PEMBROLIZUMAB
     Indication: LUNG NEOPLASM MALIGNANT
  5. XGEVA [Suspect]
     Active Substance: DENOSUMAB
     Indication: LUNG NEOPLASM MALIGNANT
  6. XALKORI [Suspect]
     Active Substance: CRIZOTINIB
     Indication: LUNG NEOPLASM MALIGNANT

REACTIONS (1)
  - Death [None]

NARRATIVE: CASE EVENT DATE: 20170315
